FAERS Safety Report 6545976-1 (Version None)
Quarter: 2010Q1

REPORT INFORMATION
  Report Type: 
  Country: None (occurrence: None)
  Receive Date: 20100121
  Receipt Date: 20100115
  Transmission Date: 20100710
  Serious: Yes (Hospitalization, Other)
  Sender: FDA-Public Use
  Company Number: BR-ABBOTT-10P-020-0620113-00

PATIENT
  Sex: Male
  Weight: 68 kg

DRUGS (7)
  1. HUMIRA [Suspect]
     Indication: RHEUMATOID ARTHRITIS
     Route: 058
     Dates: start: 20070101
  2. HUMIRA [Suspect]
  3. TRIAMCINOLONE+MELOXICAM+HYDROCHLOROTHIAZIDE+FAMOTIDINE [Concomitant]
     Indication: RHEUMATOID ARTHRITIS
     Dosage: 2MG/15MG/25MG/20MG
     Route: 048
     Dates: start: 19980101
  4. CAPTOPRIL [Concomitant]
     Indication: HYPERTENSION
     Dosage: 2 PER DAY
     Route: 048
  5. PONDERA [Concomitant]
     Indication: HYPERTENSION
     Dosage: 1 PER DAY
     Route: 048
  6. CLORANA [Concomitant]
     Indication: HYPERTENSION
     Dosage: 1 PER DAY
     Route: 048
  7. OMEPRAZOLE [Concomitant]
     Indication: GASTRIC DISORDER
     Dosage: 1 PER DAY
     Route: 048

REACTIONS (2)
  - LABYRINTHITIS [None]
  - OSTEOARTHRITIS [None]
